FAERS Safety Report 6046286-1 (Version None)
Quarter: 2009Q1

REPORT INFORMATION
  Report Type: 
  Country: None (occurrence: None)
  Receive Date: 20090122
  Receipt Date: 20090115
  Transmission Date: 20090719
  Serious: Yes (Hospitalization)
  Sender: FDA-Public Use
  Company Number: GB-PFIZER INC-2009156870

PATIENT

DRUGS (2)
  1. IRINOTECAN HCL [Suspect]
     Dates: start: 20081222
  2. CETUXIMAB [Suspect]
     Dates: start: 20081224

REACTIONS (2)
  - CONVULSION [None]
  - HEADACHE [None]
